FAERS Safety Report 8671997 (Version 2)
Quarter: 2012Q4

REPORT INFORMATION
  Report Type: 
  Country: DE (occurrence: DE)
  Receive Date: 20120719
  Receipt Date: 20120829
  Transmission Date: 20130627
  Serious: Yes (Hospitalization, Other)
  Sender: FDA-Public Use
  Company Number: DE-BRISTOL-MYERS SQUIBB COMPANY-16754749

PATIENT
  Age: 62 Year
  Sex: Female

DRUGS (3)
  1. ABILIFY TABS 10 MG [Suspect]
     Indication: BIPOLAR DISORDER
     Dates: start: 20120403, end: 20120708
  2. CLOZAPINE [Interacting]
     Dosage: Clozapine tabs
dose was increased from 50-50-50 to 50-50-100.
  3. TAVOR [Concomitant]

REACTIONS (2)
  - Psychotic disorder [Unknown]
  - Drug interaction [Unknown]
